FAERS Safety Report 24911086 (Version 3)
Quarter: 2025Q4

REPORT INFORMATION
  Report Type: Spontaneous
  Country: JP (occurrence: JP)
  Receive Date: 20250131
  Receipt Date: 20251217
  Transmission Date: 20260118
  Serious: Yes (Other)
  Sender: ALEXION PHARMACEUTICALS
  Company Number: JP-ASTRAZENECA-250009373_013120_P_1

PATIENT
  Age: 58 Year
  Sex: Female

DRUGS (1)
  1. IMFINZI [Suspect]
     Active Substance: DURVALUMAB
     Indication: Endometrial cancer
     Dosage: 1120 MILLIGRAM
     Dates: start: 20241219, end: 20250106

REACTIONS (10)
  - Rheumatoid arthritis [Not Recovered/Not Resolved]
  - Platelet count decreased [Not Recovered/Not Resolved]
  - Pancytopenia [Unknown]
  - Erythema multiforme [Unknown]
  - Tubulointerstitial nephritis [Unknown]
  - Immune thrombocytopenia [Unknown]
  - Autoimmune haemolytic anaemia [Unknown]
  - Oedema peripheral [Unknown]
  - Proteinuria [Unknown]
  - Arthralgia [Unknown]

NARRATIVE: CASE EVENT DATE: 20250106
